FAERS Safety Report 6602916-4 (Version None)
Quarter: 2010Q1

REPORT INFORMATION
  Report Type: 
  Country: None (occurrence: None)
  Receive Date: 20100219
  Receipt Date: 20100127
  Transmission Date: 20100710
  Serious: Yes (Other)
  Sender: FDA-Public Use
  Company Number: WAES 1002USA00086

PATIENT
  Age: 78 Year
  Sex: Female

DRUGS (3)
  1. FOSAMAX [Suspect]
     Indication: METASTASES TO BONE
     Dosage: IV
     Route: 042
  2. ZOMETA [Suspect]
     Indication: METASTASES TO BONE
     Dosage: IV
     Route: 042
  3. ANTINEOPLASTIC (UNSPECIFIED) [Concomitant]

REACTIONS (4)
  - BONE DISORDER [None]
  - IMPAIRED HEALING [None]
  - INFECTION [None]
  - OSTEONECROSIS [None]
